FAERS Safety Report 6226577-1 (Version None)
Quarter: 2009Q2

REPORT INFORMATION
  Report Type: 
  Country: None (occurrence: None)
  Receive Date: 20090612
  Receipt Date: 20090515
  Transmission Date: 20091009
  Serious: No
  Sender: FDA-Public Use
  Company Number: US-ABBOTT-09P-163-0574524-00

PATIENT
  Age: 72 Year
  Sex: Female
  Weight: 86.26 kg

DRUGS (13)
  1. HUMIRA [Suspect]
     Indication: PSORIATIC ARTHROPATHY
     Route: 058
     Dates: start: 20081226, end: 20090225
  2. METHOTREXATE [Concomitant]
     Indication: PSORIATIC ARTHROPATHY
     Dosage: UNKNOWN
  3. FOLIC ACID [Concomitant]
     Indication: PSORIATIC ARTHROPATHY
     Dosage: 1MG DAILY
  4. ZYRTEC [Concomitant]
     Indication: SEASONAL ALLERGY
  5. ZETIA [Concomitant]
     Indication: BLOOD CHOLESTEROL INCREASED
  6. NIACIN [Concomitant]
     Indication: BLOOD CHOLESTEROL INCREASED
     Dosage: 500MG DAILY
  7. BENADRYL [Concomitant]
     Indication: ALLERGY PROPHYLAXIS
     Dosage: 25 MG DAILY AT NIGHT
  8. BENADRYL [Concomitant]
     Indication: INSOMNIA
  9. REMICADE [Concomitant]
     Indication: PSORIATIC ARTHROPATHY
  10. CLARITIN [Concomitant]
     Indication: PROPHYLAXIS
     Route: 048
  11. CLARITIN [Concomitant]
     Indication: ADVERSE REACTION
  12. PREDNISONE [Concomitant]
     Indication: PROPHYLAXIS
  13. PREDNISONE [Concomitant]
     Indication: ADVERSE REACTION

REACTIONS (4)
  - INJECTION SITE ERYTHEMA [None]
  - INJECTION SITE HYPERSENSITIVITY [None]
  - PSORIASIS [None]
  - RASH MACULAR [None]
